FAERS Safety Report 7751558-6 (Version None)
Quarter: 2011Q3

REPORT INFORMATION
  Report Type: 
  Country: None (occurrence: None)
  Receive Date: 20110914
  Receipt Date: 20110908
  Transmission Date: 20111222
  Serious: Yes (Other)
  Sender: FDA-Public Use
  Company Number: PHHY2011NL80103

PATIENT
  Sex: Male
  Weight: 73 kg

DRUGS (3)
  1. CALCICHEW D3 [Concomitant]
     Dosage: 500MG DAILY
     Dates: start: 20090601
  2. PANTOPRAZOLE [Concomitant]
     Dosage: 40 MG, DAILY
     Dates: start: 20090601
  3. ZOLEDRONOC ACID [Suspect]
     Indication: OSTEOPOROSIS
     Dosage: 0.05 MG/ML, UNK
     Route: 042
     Dates: start: 20110815

REACTIONS (8)
  - FRACTURE [None]
  - SPINAL DISORDER [None]
  - SPINAL COMPRESSION FRACTURE [None]
  - INFLUENZA LIKE ILLNESS [None]
  - TINNITUS [None]
  - BACK PAIN [None]
  - TENDONITIS [None]
  - BODY HEIGHT DECREASED [None]
